FAERS Safety Report 5060402-X (Version None)
Quarter: 2006Q3

REPORT INFORMATION
  Report Type: 
  Country: None (occurrence: None)
  Receive Date: 20060725
  Receipt Date: 20060706
  Transmission Date: 20061208
  Serious: Yes (Other)
  Sender: FDA-Public Use
  Company Number: FR-BRACCO-BRO-010310

PATIENT
  Sex: Female

DRUGS (3)
  1. MULTIHANCE [Suspect]
     Indication: DEAFNESS
     Route: 042
     Dates: start: 20050725, end: 20050725
  2. MULTIHANCE [Suspect]
     Indication: NUCLEAR MAGNETIC RESONANCE IMAGING BRAIN
     Route: 042
     Dates: start: 20050725, end: 20050725
  3. EFFERALGAN                         /00020001/ [Concomitant]
     Route: 048

REACTIONS (1)
  - URTICARIA GENERALISED [None]
